FAERS Safety Report 13813985 (Version 1)
Quarter: 2017Q3

REPORT INFORMATION
  Report Type: Spontaneous
  Country: US (occurrence: US)
  Receive Date: 20170731
  Receipt Date: 20170731
  Transmission Date: 20171127
  Serious: No
  Sender: FDA-Public Use
  Company Number: US-PFIZER INC-2017330158

PATIENT
  Age: 86 Year
  Sex: Female

DRUGS (3)
  1. PROMETHAZINE HCL [Suspect]
     Active Substance: PROMETHAZINE HYDROCHLORIDE
     Dosage: UNK
  2. ARICEPT [Suspect]
     Active Substance: DONEPEZIL HYDROCHLORIDE
     Dosage: UNK
  3. CLIDINIUM [Suspect]
     Active Substance: CLIDINIUM
     Dosage: UNK

REACTIONS (1)
  - Drug hypersensitivity [Unknown]
